FAERS Safety Report 9465697 (Version 1)
Quarter: 2013Q3

REPORT INFORMATION
  Report Type: Report from Study
  Country: CA (occurrence: CA)
  Receive Date: 20130820
  Receipt Date: 20130820
  Transmission Date: 20140515
  Serious: Yes (Other)
  Sender: FDA-Public Use
  Company Number: CA-JNJFOC-20130807609

PATIENT
  Age: 60 Year
  Sex: Female
  Weight: 107 kg

DRUGS (10)
  1. REMICADE [Suspect]
     Indication: PSORIASIS
     Route: 042
     Dates: start: 20080616
  2. NORVASC [Concomitant]
     Route: 065
  3. AVANDIA [Concomitant]
     Route: 065
  4. MICARDIS [Concomitant]
     Route: 065
  5. CRESTOR [Concomitant]
     Route: 065
  6. ENTROPHEN [Concomitant]
     Route: 065
  7. VENTOLIN [Concomitant]
     Route: 065
  8. PERCOCET [Concomitant]
     Route: 065
  9. DILTIAZEM [Concomitant]
     Route: 065
  10. PRADAXA [Concomitant]
     Route: 065

REACTIONS (1)
  - Atrial fibrillation [Recovered/Resolved]
